FAERS Safety Report 4918523-5 (Version None)
Quarter: 2006Q1

REPORT INFORMATION
  Report Type: 
  Country: None (occurrence: None)
  Receive Date: 20060221
  Receipt Date: 20060221
  Transmission Date: 20060701
  Serious: Yes (Hospitalization)
  Sender: FDA-Public Use
  Company Number: None

PATIENT
  Age: 20 Year
  Sex: Female

DRUGS (2)
  1. LOSARTAN MERCK AND CO [Suspect]
     Indication: RHABDOMYOLYSIS
     Dosage: 50 QD PO
     Route: 048
     Dates: start: 20051219
  2. SIMVASTATIN MERCK AND CO [Suspect]
     Dosage: 10 MG PO QD
     Route: 048
     Dates: start: 20051217, end: 20051227

REACTIONS (9)
  - ABDOMINAL PAIN UPPER [None]
  - ASTHENIA [None]
  - DIZZINESS [None]
  - HYPOTENSION [None]
  - LABORATORY TEST ABNORMAL [None]
  - MUSCULAR WEAKNESS [None]
  - OEDEMA [None]
  - RENAL FAILURE ACUTE [None]
  - VOMITING [None]
